FAERS Safety Report 19290121 (Version 3)
Quarter: 2021Q2

REPORT INFORMATION
  Report Type: Spontaneous
  Country: ES (occurrence: ES)
  Receive Date: 20210521
  Receipt Date: 20210604
  Transmission Date: 20210717
  Serious: Yes (Other)
  Sender: FDA-Public Use
  Company Number: ES-GILEAD-2020-0492052

PATIENT
  Age: 64 Year
  Sex: Female
  Weight: 100 kg

DRUGS (13)
  1. TOCILIZUMAB. [Concomitant]
     Active Substance: TOCILIZUMAB
     Dosage: UNK, ONCE
  2. LEVOSULPIRIDE [Concomitant]
     Active Substance: LEVOSULPIRIDE
  3. BEMIPARIN [Concomitant]
     Active Substance: BEMIPARIN
  4. ENOXAPARIN [Concomitant]
     Active Substance: ENOXAPARIN
  5. CHLORTHALIDONE. [Concomitant]
     Active Substance: CHLORTHALIDONE
  6. FINASTERIDE. [Concomitant]
     Active Substance: FINASTERIDE
  7. AZITHROMYCIN ANHYDROUS. [Concomitant]
     Active Substance: AZITHROMYCIN ANHYDROUS
  8. ACETYLSALICYLIC ACID [Concomitant]
     Active Substance: ASPIRIN
  9. VEKLURY [Suspect]
     Active Substance: REMDESIVIR
     Indication: COVID-19 PNEUMONIA
     Dosage: 200 MG, QD
     Route: 042
     Dates: start: 20200807, end: 20200807
  10. VEKLURY [Suspect]
     Active Substance: REMDESIVIR
     Dosage: 100 MG, QD
     Route: 042
     Dates: start: 20200808, end: 20200811
  11. DEXAMETASONA [DEXAMETHASONE] [Suspect]
     Active Substance: DEXAMETHASONE
     Indication: COVID-19
     Route: 065
     Dates: start: 20200805, end: 20200815
  12. CEFTRIAXONE. [Concomitant]
     Active Substance: CEFTRIAXONE
  13. OXYGEN. [Concomitant]
     Active Substance: OXYGEN

REACTIONS (1)
  - Pancreatitis acute [Recovered/Resolved]

NARRATIVE: CASE EVENT DATE: 20200809
